FAERS Safety Report 8927950 (Version 1)
Quarter: 2012Q4

REPORT INFORMATION
  Report Type: Spontaneous
  Country: US (occurrence: None)
  Receive Date: 20121126
  Receipt Date: 20121126
  Transmission Date: 20130627
  Serious: Yes (Hospitalization, Other)
  Sender: FDA-Public Use
  Company Number: None

PATIENT
  Age: 53 Year
  Sex: Female
  Weight: 68.04 kg

DRUGS (1)
  1. ACTONEL [Suspect]
     Indication: OSTEOPOROSIS
     Route: 048
     Dates: start: 20121108, end: 20121108

REACTIONS (14)
  - Disorientation [None]
  - Blood pressure increased [None]
  - Heart rate increased [None]
  - Dysgeusia [None]
  - Eructation [None]
  - Decreased appetite [None]
  - Influenza like illness [None]
  - Pain in extremity [None]
  - Pain in extremity [None]
  - Cough [None]
  - Anxiety [None]
  - Vision blurred [None]
  - Hypoaesthesia [None]
  - Pain in jaw [None]
